FAERS Safety Report 24149116 (Version 3)
Quarter: 2024Q4

REPORT INFORMATION
  Report Type: Spontaneous
  Country: US (occurrence: US)
  Receive Date: 20240729
  Receipt Date: 20241202
  Transmission Date: 20250115
  Serious: No
  Sender: SANOFI AVENTIS
  Company Number: US-SA-SAC20240722000368

PATIENT
  Age: 69 Year
  Sex: Female

DRUGS (1)
  1. DUPIXENT [Suspect]
     Active Substance: DUPILUMAB
     Indication: Neurodermatitis
     Dosage: 300 MG, QOW
     Route: 058

REACTIONS (6)
  - Ear infection [Unknown]
  - Pain [Unknown]
  - Lacrimation increased [Unknown]
  - Pruritus [Not Recovered/Not Resolved]
  - Eye pruritus [Unknown]
  - Arthralgia [Unknown]
